FAERS Safety Report 8041147-0 (Version None)
Quarter: 2012Q1

REPORT INFORMATION
  Report Type: 
  Country: None (occurrence: None)
  Receive Date: 20120112
  Receipt Date: 20120110
  Transmission Date: 20120608
  Serious: Yes (Death, Other)
  Sender: FDA-Public Use
  Company Number: DE-AMGEN-DEUSP2012001479

PATIENT
  Sex: Male

DRUGS (6)
  1. CYCLOPHOSPHAMIDE [Concomitant]
     Indication: NON-HODGKIN'S LYMPHOMA
  2. VINCRISTINE [Concomitant]
     Indication: NON-HODGKIN'S LYMPHOMA
  3. DOXORUBICIN HCL [Concomitant]
     Indication: NON-HODGKIN'S LYMPHOMA
  4. NEULASTA [Suspect]
     Indication: CHEMOTHERAPY
  5. RITUXIMAB [Concomitant]
     Indication: NON-HODGKIN'S LYMPHOMA
  6. PREDNISONE TAB [Concomitant]
     Indication: NON-HODGKIN'S LYMPHOMA

REACTIONS (3)
  - DISEASE COMPLICATION [None]
  - PNEUMONIA [None]
  - WHITE BLOOD CELL COUNT INCREASED [None]
